FAERS Safety Report 23906559 (Version 4)
Quarter: 2024Q2

REPORT INFORMATION
  Report Type: Report from Study
  Country: US (occurrence: US)
  Receive Date: 20240528
  Receipt Date: 20240615
  Transmission Date: 20240716
  Serious: Yes (Hospitalization, Other)
  Sender: FDA-Public Use
  Company Number: US-ABBVIE-5773593

PATIENT
  Sex: Male
  Weight: 59.874 kg

DRUGS (7)
  1. HUMIRA [Suspect]
     Active Substance: ADALIMUMAB
     Indication: Crohn^s disease
     Dosage: FORM STRENGTH : 40 MILLIGRAM?FREQUENCY TEXT: DAY 1?START DATE TEXT: 4-5 YEARS AGO
     Route: 058
     Dates: start: 2019
  2. HUMIRA [Suspect]
     Active Substance: ADALIMUMAB
     Dosage: FORM STRENGTH : 40 MILLIGRAM
     Route: 058
     Dates: start: 2023, end: 202402
  3. HUMIRA [Suspect]
     Active Substance: ADALIMUMAB
     Dosage: FORM STRENGTH : 40 MILLIGRAM?FIRST ADMIN DATE: 2024
     Route: 058
     Dates: end: 20240506
  4. EPLERENONE [Concomitant]
     Active Substance: EPLERENONE
     Indication: Product used for unknown indication
  5. PREDNISONE [Concomitant]
     Active Substance: PREDNISONE
     Indication: Product used for unknown indication
  6. PREDNISONE [Concomitant]
     Active Substance: PREDNISONE
     Indication: Product used for unknown indication
  7. PREDNISONE [Concomitant]
     Active Substance: PREDNISONE
     Indication: Product used for unknown indication

REACTIONS (10)
  - Intestinal obstruction [Unknown]
  - Therapeutic product effect decreased [Recovering/Resolving]
  - Crohn^s disease [Recovered/Resolved]
  - Fall [Unknown]
  - Flatulence [Unknown]
  - Underweight [Not Recovered/Not Resolved]
  - Pain [Unknown]
  - Loss of consciousness [Unknown]
  - Crohn^s disease [Recovering/Resolving]
  - Ileal stenosis [Unknown]

NARRATIVE: CASE EVENT DATE: 20240101
